FAERS Safety Report 9251920 (Version 2)
Quarter: 2013Q2

REPORT INFORMATION
  Report Type: Spontaneous
  Country: GB (occurrence: GB)
  Receive Date: 20130424
  Receipt Date: 20130514
  Transmission Date: 20140414
  Serious: Yes (Hospitalization, Other)
  Sender: FDA-Public Use
  Company Number: GB-MYLANLABS-2013S1008027

PATIENT
  Age: 28 Year
  Sex: Female

DRUGS (5)
  1. BACLOFEN [Suspect]
     Indication: PRODUCT USED FOR UNKNOWN INDICATION
  2. DICLOFENAC [Suspect]
     Indication: PRODUCT USED FOR UNKNOWN INDICATION
  3. ONDANSETRON [Suspect]
     Indication: PRODUCT USED FOR UNKNOWN INDICATION
  4. ENOXAPARIN [Suspect]
     Indication: PRODUCT USED FOR UNKNOWN INDICATION
  5. VALOID /00014902/ [Suspect]
     Indication: MALAISE
     Route: 042

REACTIONS (7)
  - Blood pressure decreased [Recovering/Resolving]
  - Chest pain [Recovering/Resolving]
  - Insomnia [Recovering/Resolving]
  - Dizziness [Recovering/Resolving]
  - Gastrointestinal disorder [Recovering/Resolving]
  - Panic reaction [Recovering/Resolving]
  - Wrong technique in drug usage process [Unknown]
